FAERS Safety Report 11885876 (Version 3)
Quarter: 2016Q1

REPORT INFORMATION
  Report Type: Spontaneous
  Country: US (occurrence: US)
  Receive Date: 20160104
  Receipt Date: 20160229
  Transmission Date: 20160526
  Serious: No
  Sender: FDA-Public Use
  Company Number: US-LEO PHARMA-239279

PATIENT
  Age: 54 Year
  Sex: Male

DRUGS (1)
  1. PICATO [Suspect]
     Active Substance: INGENOL MEBUTATE
     Indication: ACTINIC KERATOSIS
     Route: 061
     Dates: start: 20151218, end: 20151220

REACTIONS (9)
  - Application site exfoliation [Recovered/Resolved]
  - Eye pain [Recovered/Resolved]
  - Application site erythema [Recovered/Resolved]
  - Application site pain [Recovered/Resolved]
  - Application site dryness [Recovered/Resolved]
  - Eye swelling [Recovered/Resolved]
  - Drug administered at inappropriate site [Unknown]
  - Application site pain [Recovered/Resolved]
  - Application site swelling [Recovered/Resolved]

NARRATIVE: CASE EVENT DATE: 20151218
